FAERS Safety Report 7529592-0 (Version None)
Quarter: 2011Q2

REPORT INFORMATION
  Report Type: 
  Country: None (occurrence: None)
  Receive Date: 20110607
  Receipt Date: 20110603
  Transmission Date: 20111010
  Serious: Yes (Death, Hospitalization)
  Sender: FDA-Public Use
  Company Number: US-B.I. PHARMACEUTICALS,INC./RIDGEFIELD-2011-BP-12365BP

PATIENT
  Age: 66 Year
  Sex: Female
  Weight: 88.9 kg

DRUGS (7)
  1. KLOR-CON [Concomitant]
     Dosage: 20 MEQ
  2. VITAMIN B-12 [Concomitant]
     Dosage: 1500 MCG
  3. PRADAXA [Suspect]
     Indication: ATRIAL FIBRILLATION
     Dosage: 300 MG
     Route: 048
     Dates: start: 20101217
  4. PRADAXA [Suspect]
     Dosage: 150 MG
     Route: 048
     Dates: start: 20110104
  5. LEVOTHYROXINE SODIUM [Concomitant]
     Dosage: 25 MCG
  6. VITAMIN D [Concomitant]
     Dosage: 1000 U
  7. FUROSEMIDE [Concomitant]
     Dosage: 20 MG

REACTIONS (1)
  - GASTROINTESTINAL HAEMORRHAGE [None]
